FAERS Safety Report 13826083 (Version 1)
Quarter: 2017Q3

REPORT INFORMATION
  Report Type: Spontaneous
  Country: GR (occurrence: GR)
  Receive Date: 20170802
  Receipt Date: 20170802
  Transmission Date: 20171127
  Serious: Yes (Hospitalization, Other)
  Sender: FDA-Public Use
  Company Number: ALCN2017GR004600

PATIENT
  Age: 70 Year
  Sex: Male

DRUGS (5)
  1. VANCOMYCIN [Concomitant]
     Active Substance: VANCOMYCIN
     Indication: MENINGITIS BACTERIAL
     Dosage: UNK
     Route: 065
  2. AMPICILLIN [Concomitant]
     Active Substance: AMPICILLIN
     Indication: MENINGITIS BACTERIAL
     Dosage: UNK
     Route: 065
  3. DEXAMETHASONE. [Concomitant]
     Active Substance: DEXAMETHASONE
     Indication: MENINGITIS BACTERIAL
     Dosage: UNK
     Route: 065
  4. CEFTRIAXONE. [Concomitant]
     Active Substance: CEFTRIAXONE
     Indication: MENINGITIS BACTERIAL
     Dosage: UNK
     Route: 065
  5. TIMOLOL GFS [Suspect]
     Active Substance: TIMOLOL MALEATE
     Indication: GLAUCOMA
     Dosage: UNK
     Route: 047

REACTIONS (2)
  - Dizziness postural [Recovered/Resolved]
  - Sinus bradycardia [Recovered/Resolved]
